FAERS Safety Report 5845664-0 (Version None)
Quarter: 2008Q3

REPORT INFORMATION
  Report Type: 
  Country: None (occurrence: None)
  Receive Date: 20080731
  Receipt Date: 20080529
  Transmission Date: 20090109
  Serious: No
  Sender: FDA-Public Use
  Company Number: US200805006264

PATIENT
  Age: 65 Year
  Sex: Male
  Weight: 105.2 kg

DRUGS (9)
  1. BYETTA [Suspect]
     Indication: TYPE 2 DIABETES MELLITUS
     Dosage: 5 UG, 2/D, SUBCUTANEOUS
     Route: 058
     Dates: start: 20070801
  2. ACTOS /USA/ (PIOGLITAZONE HYDROCHLORIDE) [Concomitant]
  3. AMARYL [Concomitant]
  4. MIRAPEX [Concomitant]
  5. TRICOR [Concomitant]
  6. NORVASC [Concomitant]
  7. ZOCOR [Concomitant]
  8. ASPIRIN [Concomitant]
  9. FOLBEE (CYANOCOBALAMIN, FOLIC ACID, PYRIDOXINE) [Concomitant]

REACTIONS (2)
  - BLOOD TEST ABNORMAL [None]
  - SKIN ODOUR ABNORMAL [None]
